FAERS Safety Report 12927997 (Version 1)
Quarter: 2016Q4

REPORT INFORMATION
  Report Type: Spontaneous
  Country: US (occurrence: US)
  Receive Date: 20161110
  Receipt Date: 20161110
  Transmission Date: 20170207
  Serious: Yes (Disabling)
  Sender: FDA-Public Use
  Company Number: None

PATIENT
  Age: 74 Year
  Sex: Female
  Weight: 54.43 kg

DRUGS (6)
  1. SPIRONOLACTONE. [Concomitant]
     Active Substance: SPIRONOLACTONE
  2. CLARINEX [Concomitant]
     Active Substance: DESLORATADINE
  3. ZETIA [Suspect]
     Active Substance: EZETIMIBE
     Dosage: 1 PILL ONCE DAILY BY MOUTH
     Route: 048
  4. ACETAMINOPHEN. [Concomitant]
     Active Substance: ACETAMINOPHEN
  5. NASONEX [Concomitant]
     Active Substance: MOMETASONE FUROATE
  6. VITAMIN D3 [Concomitant]
     Active Substance: CHOLECALCIFEROL

REACTIONS (4)
  - Gait disturbance [None]
  - Myalgia [None]
  - Inflammation [None]
  - Malaise [None]

NARRATIVE: CASE EVENT DATE: 2016
